FAERS Safety Report 25745486 (Version 1)
Quarter: 2025Q3

REPORT INFORMATION
  Report Type: Spontaneous
  Country: US (occurrence: US)
  Receive Date: 20250901
  Receipt Date: 20250901
  Transmission Date: 20251021
  Serious: Yes (Other)
  Sender: BIOVITRUM
  Company Number: US-BIOVITRUM-2025-US-011702

PATIENT
  Age: 30 Year
  Sex: Male

DRUGS (2)
  1. DOPTELET [Suspect]
     Active Substance: AVATROMBOPAG MALEATE
     Indication: Immune thrombocytopenia
     Route: 048
     Dates: start: 2022
  2. DOPTELET [Suspect]
     Active Substance: AVATROMBOPAG MALEATE
     Route: 048

REACTIONS (7)
  - Platelet count decreased [Unknown]
  - Product dose omission issue [Unknown]
  - Drug tolerance [Unknown]
  - Intentional dose omission [Unknown]
  - Product use issue [Unknown]
  - Platelet count abnormal [Unknown]
  - Drug ineffective [Unknown]
